FAERS Safety Report 7961055-0 (Version None)
Quarter: 2011Q4

REPORT INFORMATION
  Report Type: 
  Country: None (occurrence: None)
  Receive Date: 20111202
  Receipt Date: 20111129
  Transmission Date: 20120403
  Serious: Yes (Hospitalization)
  Sender: FDA-Public Use
  Company Number: AUR-APL-2011-05971

PATIENT
  Age: 75 Year
  Sex: Female

DRUGS (12)
  1. CITALOPRAM HYDROBROMIDE [Suspect]
     Indication: DEPRESSION
     Dosage: (20 MG), ORAL
     Route: 048
     Dates: start: 20111108, end: 20111113
  2. ENOXAPARIN [Concomitant]
  3. LISINOPRIL [Concomitant]
  4. SIMVASTATIN [Concomitant]
  5. ASPIRIN [Concomitant]
  6. FLOXACILLIN SODIUM [Concomitant]
  7. HYDROXOCOBALAMIN [Concomitant]
  8. ISOSORBIDE MONONITRATE [Concomitant]
  9. METFORMIN HCL [Concomitant]
  10. DEXAMETHASONE [Concomitant]
  11. MUPIROCIN [Concomitant]
  12. FOLIC ACID [Concomitant]

REACTIONS (3)
  - INAPPROPRIATE ANTIDIURETIC HORMONE SECRETION [None]
  - CELLULITIS [None]
  - CONFUSIONAL STATE [None]
